FAERS Safety Report 7453536-3 (Version None)
Quarter: 2011Q2

REPORT INFORMATION
  Report Type: 
  Country: None (occurrence: None)
  Receive Date: 20110502
  Receipt Date: 20110302
  Transmission Date: 20111010
  Serious: No
  Sender: FDA-Public Use
  Company Number: US-ASTRAZENECA-2011SE11385

PATIENT
  Age: 76 Year
  Sex: Female
  Weight: 77.1 kg

DRUGS (3)
  1. HTN MEDICINE [Concomitant]
  2. A WATER PILL [Concomitant]
  3. NEXIUM [Suspect]
     Indication: GASTROOESOPHAGEAL REFLUX DISEASE
     Route: 048
     Dates: start: 20010101, end: 20110223

REACTIONS (2)
  - ABDOMINAL PAIN [None]
  - FAECAL INCONTINENCE [None]
